FAERS Safety Report 14762091 (Version 1)
Quarter: 2018Q2

REPORT INFORMATION
  Report Type: Spontaneous
  Country: CA (occurrence: CA)
  Receive Date: 20180416
  Receipt Date: 20180416
  Transmission Date: 20180711
  Serious: Yes (Other)
  Sender: FDA-Public Use
  Company Number: CA-CONCORDIA PHARMACEUTICALS INC.-GSH201804-001268

PATIENT
  Age: 63 Year
  Sex: Female

DRUGS (12)
  1. HUMIRA [Suspect]
     Active Substance: ADALIMUMAB
     Indication: PRODUCT USED FOR UNKNOWN INDICATION
     Route: 058
  2. CELEBREX [Concomitant]
     Active Substance: CELECOXIB
  3. LEFLUNOMIDE. [Suspect]
     Active Substance: LEFLUNOMIDE
     Indication: PRODUCT USED FOR UNKNOWN INDICATION
     Route: 048
  4. SULFASALAZINE. [Suspect]
     Active Substance: SULFASALAZINE
     Indication: RHEUMATOID ARTHRITIS
     Route: 065
  5. PREDNISONE. [Concomitant]
     Active Substance: PREDNISONE
  6. XELJANZ [Concomitant]
     Active Substance: TOFACITINIB CITRATE
  7. VITAMIN D [Concomitant]
     Active Substance: CHOLECALCIFEROL
  8. HYDROXYCHLOROQUINE [Suspect]
     Active Substance: HYDROXYCHLOROQUINE
     Indication: PRODUCT USED FOR UNKNOWN INDICATION
     Route: 048
  9. ENBREL [Suspect]
     Active Substance: ETANERCEPT
     Indication: RHEUMATOID ARTHRITIS
     Route: 065
  10. METHOTREXATE. [Suspect]
     Active Substance: METHOTREXATE
     Indication: RHEUMATOID ARTHRITIS
     Route: 048
  11. ORENCIA [Suspect]
     Active Substance: ABATACEPT
     Indication: PRODUCT USED FOR UNKNOWN INDICATION
     Route: 065
  12. PLAQUENIL [Concomitant]
     Active Substance: HYDROXYCHLOROQUINE SULFATE

REACTIONS (12)
  - Bronchitis [Not Recovered/Not Resolved]
  - Stress [Not Recovered/Not Resolved]
  - Pain [Not Recovered/Not Resolved]
  - Influenza like illness [Not Recovered/Not Resolved]
  - Interstitial lung disease [Not Recovered/Not Resolved]
  - Rheumatoid arthritis [Not Recovered/Not Resolved]
  - Foot deformity [Not Recovered/Not Resolved]
  - Drug ineffective [Unknown]
  - Drug intolerance [Unknown]
  - Osteoporosis [Not Recovered/Not Resolved]
  - Nodule [Not Recovered/Not Resolved]
  - Depression [Not Recovered/Not Resolved]
